FAERS Safety Report 6807312-2 (Version None)
Quarter: 2010Q2

REPORT INFORMATION
  Report Type: 
  Country: None (occurrence: None)
  Receive Date: 20100629
  Receipt Date: 20080904
  Transmission Date: 20101027
  Serious: No
  Sender: FDA-Public Use
  Company Number: US-PFIZER INC-2008074747

PATIENT
  Sex: Male

DRUGS (3)
  1. VIAGRA [Suspect]
     Dates: start: 20080315
  2. SIMVASTATIN [Concomitant]
  3. ALL OTHER THERAPEUTIC PRODUCTS [Concomitant]

REACTIONS (2)
  - CYANOPSIA [None]
  - HEADACHE [None]
